FAERS Safety Report 13587550 (Version 1)
Quarter: 2017Q2

REPORT INFORMATION
  Report Type: Spontaneous
  Country: US (occurrence: US)
  Receive Date: 20170526
  Receipt Date: 20170526
  Transmission Date: 20170830
  Serious: No
  Sender: FDA-Public Use
  Company Number: None

PATIENT
  Sex: Female

DRUGS (1)
  1. HUMIRA [Suspect]
     Active Substance: ADALIMUMAB
     Indication: PLANTAR FASCIAL FIBROMATOSIS
     Route: 058
     Dates: start: 20160803

REACTIONS (2)
  - Rash [None]
  - Rash erythematous [None]
